FAERS Safety Report 5698084-6 (Version None)
Quarter: 2008Q2

REPORT INFORMATION
  Report Type: 
  Country: None (occurrence: None)
  Receive Date: 20080408
  Receipt Date: 20080331
  Transmission Date: 20081010
  Serious: Yes (Hospitalization)
  Sender: FDA-Public Use
  Company Number: US-ELI_LILLY_AND_COMPANY-US200802003638

PATIENT
  Sex: Female

DRUGS (11)
  1. HUMALOG [Suspect]
     Dates: start: 19780101
  2. HUMALOG [Suspect]
     Dosage: 10 U, 3/D
     Dates: start: 20030101
  3. LASIX [Concomitant]
     Indication: HYPERTENSION
     Dosage: 40 MG, DAILY (1/D)
     Route: 048
  4. OMEPRAZOLE [Concomitant]
     Indication: GASTROOESOPHAGEAL REFLUX DISEASE
     Dosage: 20 MG, 2/D
     Route: 048
  5. TERAZOSIN HCL [Concomitant]
     Indication: HYPERTENSION
     Dosage: 2 MG, UNK
     Route: 048
  6. LANTUS [Concomitant]
     Dosage: 14 U, UNK
     Dates: start: 20030101
  7. MELATONIN [Concomitant]
     Indication: INSOMNIA
     Dosage: 5 MG, UNK
     Route: 048
  8. ALPRAZOLAM [Concomitant]
     Indication: ANXIETY
     Dosage: 0.25 MG, AS NEEDED
  9. BENAZEPRIL HYDROCHLORIDE [Concomitant]
     Indication: HYPERTENSION
     Dosage: 20 MG, DAILY (1/D)
     Route: 048
  10. PROCARDIA XL [Concomitant]
  11. FOSAMAX [Concomitant]
     Indication: OSTEOPOROSIS
     Dates: start: 20071001

REACTIONS (6)
  - ABDOMINAL PAIN [None]
  - CONSTIPATION [None]
  - DIARRHOEA [None]
  - DIVERTICULUM [None]
  - HAEMORRHOIDS [None]
  - INTESTINAL FUNCTIONAL DISORDER [None]
